FAERS Safety Report 9880692 (Version 2)
Quarter: 2014Q2

REPORT INFORMATION
  Report Type: Spontaneous
  Country: US (occurrence: US)
  Receive Date: 20140207
  Receipt Date: 20140416
  Transmission Date: 20141212
  Serious: Yes (Life-Threatening, Hospitalization)
  Sender: FDA-Public Use
  Company Number: US-JNJFOC-20140117862

PATIENT
  Age: 50 Year
  Sex: Male

DRUGS (11)
  1. STELARA [Suspect]
     Indication: PSORIASIS
     Route: 058
  2. STELARA [Suspect]
     Indication: PSORIASIS
     Route: 058
     Dates: start: 20121030
  3. METHOTREXATE [Concomitant]
     Indication: PSORIASIS
     Dosage: HIGH DOSE (10-22.5MG)
     Route: 065
     Dates: start: 20120202
  4. FOLIC ACID [Concomitant]
     Indication: PSORIASIS
     Route: 065
     Dates: start: 20120103
  5. TRIAMCINOLONE [Concomitant]
     Indication: PSORIASIS
     Route: 065
     Dates: start: 20120103
  6. HYDROCORTISONE VALERATE [Concomitant]
     Indication: PSORIASIS
     Route: 065
  7. METFORMIN [Concomitant]
     Route: 065
  8. METOPROLOL [Concomitant]
     Route: 065
  9. ATORVASTATIN [Concomitant]
     Route: 065
  10. LOSARTAN [Concomitant]
     Route: 065
  11. ASA [Concomitant]
     Route: 065

REACTIONS (1)
  - Acute myocardial infarction [Recovered/Resolved]
